FAERS Safety Report 13234043 (Version 6)
Quarter: 2017Q2

REPORT INFORMATION
  Report Type: Report from Study
  Country: US (occurrence: US)
  Receive Date: 20170215
  Receipt Date: 20170525
  Transmission Date: 20170830
  Serious: Yes (Hospitalization)
  Sender: FDA-Public Use
  Company Number: US-GILEAD-2016-0249076

PATIENT
  Age: 63 Year
  Sex: Female
  Weight: 68.27 kg

DRUGS (14)
  1. AMBRISENTAN [Suspect]
     Active Substance: AMBRISENTAN
     Indication: PULMONARY ARTERIAL HYPERTENSION
     Dosage: 10 MG, QD
     Route: 048
     Dates: start: 20141126
  2. HYZAAR [Concomitant]
     Active Substance: HYDROCHLOROTHIAZIDE\LOSARTAN POTASSIUM
  3. FISH OIL [Concomitant]
     Active Substance: FISH OIL
  4. BENADRYL [Concomitant]
     Active Substance: DIPHENHYDRAMINE HYDROCHLORIDE
  5. VITAMIN D                          /00107901/ [Concomitant]
     Active Substance: ERGOCALCIFEROL
  6. IRON [Concomitant]
     Active Substance: IRON
  7. HYDROCORTISONE. [Concomitant]
     Active Substance: HYDROCORTISONE
  8. MAGNESIUM [Concomitant]
     Active Substance: MAGNESIUM
  9. TRAMADOL. [Concomitant]
     Active Substance: TRAMADOL
  10. ADCIRCA [Concomitant]
     Active Substance: TADALAFIL
  11. ASA [Concomitant]
     Active Substance: ASPIRIN
  12. NORVASC [Concomitant]
     Active Substance: AMLODIPINE BESYLATE
  13. VITAMIN E                          /00110501/ [Concomitant]
     Active Substance: TOCOPHEROL
  14. SELEXIPAG [Concomitant]
     Active Substance: SELEXIPAG

REACTIONS (4)
  - Dyspnoea [Not Recovered/Not Resolved]
  - Condition aggravated [Not Recovered/Not Resolved]
  - Product availability issue [Not Recovered/Not Resolved]
  - Fatigue [Not Recovered/Not Resolved]

NARRATIVE: CASE EVENT DATE: 20160901
